FAERS Safety Report 7042561-2 (Version None)
Quarter: 2010Q4

REPORT INFORMATION
  Report Type: 
  Country: None (occurrence: None)
  Receive Date: 20101013
  Receipt Date: 20100115
  Transmission Date: 20110411
  Serious: No
  Sender: FDA-Public Use
  Company Number: US-ASTRAZENECA-2010SE02150

PATIENT
  Age: 75 Year
  Sex: Female
  Weight: 64 kg

DRUGS (5)
  1. SYMBICORT [Suspect]
     Dosage: 340 UG TWO TIMES A DAY
     Route: 055
  2. SYNTHROID [Concomitant]
  3. DILTIAZEM [Concomitant]
  4. AVAPRO [Concomitant]
  5. CLONIDINE [Concomitant]

REACTIONS (3)
  - FLUSHING [None]
  - HEADACHE [None]
  - HYPERTENSION [None]
